FAERS Safety Report 23010640 (Version 2)
Quarter: 2023Q4

REPORT INFORMATION
  Report Type: Spontaneous
  Country: DE (occurrence: DE)
  Receive Date: 20230929
  Receipt Date: 20231013
  Transmission Date: 20240110
  Serious: Yes (Hospitalization, Other)
  Sender: FDA-Public Use
  Company Number: DE-BAYER-2023A134090

PATIENT
  Age: 55 Year
  Sex: Male

DRUGS (2)
  1. BETAFERON [Suspect]
     Active Substance: INTERFERON BETA-1B
     Indication: Multiple sclerosis
     Dosage: UNK
     Route: 058
     Dates: start: 201211
  2. BETAFERON [Suspect]
     Active Substance: INTERFERON BETA-1B
     Indication: Multiple sclerosis
     Dosage: UNK
     Route: 058
     Dates: start: 20230730, end: 20230920

REACTIONS (11)
  - Multiple sclerosis [None]
  - Injection site pain [Recovering/Resolving]
  - Fluid retention [Recovering/Resolving]
  - Gait disturbance [None]
  - Mood altered [Recovered/Resolved]
  - Soft tissue disorder [Recovering/Resolving]
  - Calcinosis [Recovering/Resolving]
  - Muscle contracture [Recovered/Resolved]
  - Mobility decreased [Recovered/Resolved]
  - Paraesthesia [None]
  - Limb discomfort [None]

NARRATIVE: CASE EVENT DATE: 20230801
